FAERS Safety Report 7099333-2 (Version None)
Quarter: 2010Q4

REPORT INFORMATION
  Report Type: 
  Country: None (occurrence: None)
  Receive Date: 20101112
  Receipt Date: 20080815
  Transmission Date: 20110411
  Serious: No
  Sender: FDA-Public Use
  Company Number: US-KINGPHARMUSA00001-K200800972

PATIENT
  Sex: Female
  Weight: 113.38 kg

DRUGS (1)
  1. CYTOMEL [Suspect]
     Dosage: 200 MCG, QD
     Route: 048
     Dates: start: 20080801, end: 20080801

REACTIONS (2)
  - DIARRHOEA [None]
  - HEADACHE [None]
